FAERS Safety Report 5099004-8 (Version None)
Quarter: 2006Q3

REPORT INFORMATION
  Report Type: 
  Country: None (occurrence: None)
  Receive Date: 20060731
  Receipt Date: 20050906
  Transmission Date: 20061208
  Serious: Yes (Other)
  Sender: FDA-Public Use
  Company Number: US-2005-017309

PATIENT
  Age: 20 Year
  Sex: Male
  Weight: 95.2 kg

DRUGS (2)
  1. MAGNEVIST [Suspect]
     Indication: NUCLEAR MAGNETIC RESONANCE IMAGING BRAIN
     Dosage: 10 ML, 1 DOSE, INTRAVENOUS
     Route: 042
     Dates: start: 20050819, end: 20050819
  2. ANTIEPILEPTICS [Concomitant]

REACTIONS (4)
  - CONVULSION [None]
  - HYPERHIDROSIS [None]
  - URTICARIA [None]
  - VOMITING [None]
